FAERS Safety Report 18454053 (Version 2)
Quarter: 2020Q4

REPORT INFORMATION
  Report Type: Report from Study
  Country: GB (occurrence: GB)
  Receive Date: 20201102
  Receipt Date: 20201127
  Transmission Date: 20210114
  Serious: Yes (Hospitalization)
  Sender: FDA-Public Use
  Company Number: GB-ROCHE-2706039

PATIENT
  Age: 75 Year
  Sex: Female
  Weight: 62.5 kg

DRUGS (1)
  1. TENECTEPLASE [Suspect]
     Active Substance: TENECTEPLASE
     Indication: ISCHAEMIC STROKE
     Dosage: W/A SINGLE WEIGHT ADJUSTED BOLUS DOSE UP TO A MAXIMUM OF 25 MG FREQUENCY:
     Route: 042
     Dates: start: 20200905

REACTIONS (1)
  - Neurological decompensation [Recovered/Resolved]

NARRATIVE: CASE EVENT DATE: 20200906
